FAERS Safety Report 20705044 (Version 1)
Quarter: 2022Q2

REPORT INFORMATION
  Report Type: Spontaneous
  Country: US (occurrence: US)
  Receive Date: 20220413
  Receipt Date: 20220413
  Transmission Date: 20220721
  Serious: No
  Sender: FDA-Public Use
  Company Number: US-PFIZER INC-202101589315

PATIENT
  Age: 68 Year
  Sex: Male
  Weight: 93.44 kg

DRUGS (2)
  1. LIDOCAINE HYDROCHLORIDE [Suspect]
     Active Substance: LIDOCAINE HYDROCHLORIDE
     Dosage: UNK
  2. ARNICA MONTANA. [Suspect]
     Active Substance: HOMEOPATHICS

REACTIONS (1)
  - Drug ineffective [Unknown]
